FAERS Safety Report 15156909 (Version 2)
Quarter: 2018Q3

REPORT INFORMATION
  Report Type: Spontaneous
  Country: DE (occurrence: DE)
  Receive Date: 20180718
  Receipt Date: 20180802
  Transmission Date: 20181010
  Serious: Yes (Other)
  Sender: FDA-Public Use
  Company Number: DE-TEVA-2018-DE-928046

PATIENT
  Age: 77 Year
  Sex: Female

DRUGS (7)
  1. LETROZOLE. [Suspect]
     Active Substance: LETROZOLE
     Indication: BREAST CANCER
     Dosage: UNK
     Route: 065
     Dates: start: 201503
  2. MITOXANTRONE [Concomitant]
     Active Substance: MITOXANTRONE HYDROCHLORIDE
     Indication: CHEMOTHERAPY
     Dosage: EVERY 3 WEEKS
     Route: 065
     Dates: start: 201606, end: 201610
  3. EXEMESTANE. [Suspect]
     Active Substance: EXEMESTANE
     Indication: BREAST CANCER METASTATIC
     Dosage: UNK (5?7.5 MG)
     Route: 065
     Dates: start: 201610, end: 201702
  4. FASLODEX [Suspect]
     Active Substance: FULVESTRANT
     Indication: BREAST CANCER METASTATIC
     Dosage: UNK
     Route: 065
     Dates: start: 201702
  5. EVEROLIMUS. [Suspect]
     Active Substance: EVEROLIMUS
     Indication: BREAST CANCER METASTATIC
     Dosage: UNK
     Route: 065
     Dates: start: 201610, end: 201702
  6. PALBOCICLIB [Suspect]
     Active Substance: PALBOCICLIB
     Indication: BREAST CANCER METASTATIC
     Dosage: 125 MILLIGRAM DAILY;
     Route: 065
     Dates: start: 201702
  7. XGEVA [Concomitant]
     Active Substance: DENOSUMAB
     Indication: BREAST CANCER
     Dosage: UNK UNK, QMO
     Route: 065
     Dates: start: 201409

REACTIONS (13)
  - Metastases to bone [Recovering/Resolving]
  - Blood pressure abnormal [Recovered/Resolved]
  - General physical health deterioration [Recovered/Resolved]
  - Breast cancer metastatic [Unknown]
  - Blood creatinine abnormal [Recovering/Resolving]
  - Skin toxicity [Unknown]
  - Renal impairment [Unknown]
  - Tumour marker increased [Unknown]
  - Metastases to liver [Unknown]
  - Malignant neoplasm progression [Unknown]
  - Blood glucose abnormal [Recovered/Resolved]
  - Pain [Unknown]
  - Metastases to lung [Unknown]

NARRATIVE: CASE EVENT DATE: 201602
